FAERS Safety Report 8628255 (Version 2)
Quarter: 2013Q2

REPORT INFORMATION
  Report Type: Spontaneous
  Country: PL (occurrence: PL)
  Receive Date: 20120621
  Receipt Date: 20130419
  Transmission Date: 20140414
  Serious: Yes (Hospitalization)
  Sender: FDA-Public Use
  Company Number: PHHY2012PL051622

PATIENT
  Age: 23 Year
  Sex: Female

DRUGS (3)
  1. CLARITHROMYCIN [Suspect]
  2. PARACETAMOL SANDOZ [Suspect]
  3. IBUPROFEN [Suspect]

REACTIONS (20)
  - Dermatitis exfoliative [Recovered/Resolved]
  - Rash macular [Recovered/Resolved]
  - Skin lesion [Recovered/Resolved]
  - Purpura [Recovered/Resolved]
  - Petechiae [Recovered/Resolved]
  - Ischaemia [Recovered/Resolved]
  - Skin exfoliation [Recovered/Resolved]
  - Oral disorder [Recovered/Resolved]
  - Cheilitis [Recovered/Resolved]
  - Acute hepatic failure [Recovered/Resolved]
  - Yellow skin [Recovered/Resolved]
  - Corneal disorder [Recovered/Resolved]
  - Encephalopathy [Recovered/Resolved]
  - Altered state of consciousness [Recovered/Resolved]
  - Haemorrhagic diathesis [Recovered/Resolved]
  - Respiratory failure [Recovered/Resolved]
  - Hypoxia [Recovered/Resolved]
  - Pulmonary oedema [Recovered/Resolved]
  - Generalised oedema [Recovered/Resolved]
  - Transfusion-related acute lung injury [Recovered/Resolved]
